FAERS Safety Report 4523803-1 (Version None)
Quarter: 2004Q4

REPORT INFORMATION
  Report Type: 
  Country: None (occurrence: None)
  Receive Date: 20041210
  Receipt Date: 20041210
  Transmission Date: 20050328
  Serious: Yes (Disabling)
  Sender: FDA-Public Use
  Company Number: None

PATIENT
  Sex: Female
  Weight: 83.0083 kg

DRUGS (9)
  1. GEMZAR [Suspect]
     Indication: PANCREATIC CARCINOMA
     Dosage: 900 MG   ONCE A WEEK  INTRAVENOUS
     Route: 042
     Dates: start: 20041019, end: 20041105
  2. GEMZAR [Suspect]
     Indication: PANCREATIC CARCINOMA
     Dosage: 700 MG  ONCE A WEEK  INTRAVENOUS
     Route: 042
     Dates: start: 20041112, end: 20041126
  3. ACTOS [Concomitant]
  4. PANCREASE [Concomitant]
  5. DIOVAN [Concomitant]
  6. TAMOXIFEN CITRATE [Concomitant]
  7. HYDROCODONE/APAP [Concomitant]
  8. IMODIUM [Concomitant]
  9. ARANESP [Concomitant]

REACTIONS (7)
  - ACTIVITIES OF DAILY LIVING IMPAIRED [None]
  - DIFFICULTY IN WALKING [None]
  - GENERALISED OEDEMA [None]
  - MOVEMENT DISORDER [None]
  - OEDEMA PERIPHERAL [None]
  - PAIN [None]
  - SWELLING [None]
